FAERS Safety Report 11578079 (Version 2)
Quarter: 2015Q4

REPORT INFORMATION
  Report Type: Spontaneous
  Country: US (occurrence: US)
  Receive Date: 20150930
  Receipt Date: 20151222
  Transmission Date: 20160304
  Serious: Yes (Hospitalization)
  Sender: FDA-Public Use
  Company Number: US-BAYER-2015-433113

PATIENT
  Age: 43 Year
  Sex: Female
  Weight: 72.56 kg

DRUGS (4)
  1. MIRENA [Suspect]
     Active Substance: LEVONORGESTREL
     Indication: CONTRACEPTION
     Dosage: 20 MCG/24HR, CONT
     Route: 015
     Dates: start: 20090610, end: 20120523
  2. ALESSE 28 [Concomitant]
     Active Substance: ETHINYL ESTRADIOL\LEVONORGESTREL
  3. JUNEL FE 1/20 [Concomitant]
     Active Substance: ETHINYL ESTRADIOL\NORETHINDRONE ACETATE
  4. SEASONALE [Concomitant]
     Active Substance: ETHINYL ESTRADIOL\LEVONORGESTREL

REACTIONS (12)
  - Uterine perforation [None]
  - Emotional distress [None]
  - Pain [None]
  - Mood swings [None]
  - Alopecia areata [None]
  - Anxiety [None]
  - Feeling abnormal [None]
  - Injury [None]
  - Nervousness [None]
  - Stress [None]
  - Impaired work ability [None]
  - Device issue [None]

NARRATIVE: CASE EVENT DATE: 200907
